FAERS Safety Report 15440311 (Version 3)
Quarter: 2018Q4

REPORT INFORMATION
  Report Type: Report from Study
  Country: US (occurrence: US)
  Receive Date: 20180928
  Receipt Date: 20181130
  Transmission Date: 20190204
  Serious: Yes (Other)
  Sender: FDA-Public Use
  Company Number: US-MALLINCKRODT-T201802958

PATIENT
  Age: 78 Year
  Sex: Male

DRUGS (4)
  1. REPOSITORY CORTICOTROPIN INJECTION [Suspect]
     Active Substance: CORTICOTROPIN
     Indication: NEPHRITIC SYNDROME
     Dosage: 80 UNITS/1ML, 2 TIMES PER WEEK (TUESDAY/THURSDAY)
     Route: 058
     Dates: start: 2018
  2. REPOSITORY CORTICOTROPIN INJECTION [Suspect]
     Active Substance: CORTICOTROPIN
     Indication: NEPHROTIC SYNDROME
     Dosage: 80 UNITS/1ML, 2 TIMES PER WEEK (MONDAY/THURSDAY) FOR 6 MONTHS
     Route: 058
     Dates: start: 20180703, end: 2018
  3. REPOSITORY CORTICOTROPIN INJECTION [Suspect]
     Active Substance: CORTICOTROPIN
     Indication: GLOMERULONEPHRITIS MEMBRANOUS
     Dosage: 80 UNITS/1ML, 2 TIMES PER WEEK (MONDAY/THURSDAY)
     Route: 058
     Dates: start: 20180709, end: 2018
  4. FLU [Suspect]
     Active Substance: INFLUENZA VIRUS VACCINE
     Indication: PRODUCT USED FOR UNKNOWN INDICATION
     Dosage: UNKNOWN
     Route: 065

REACTIONS (11)
  - Insomnia [Not Recovered/Not Resolved]
  - Anxiety [Unknown]
  - Oedema peripheral [Recovering/Resolving]
  - Lethargy [Unknown]
  - Impaired healing [Unknown]
  - Cellulitis [Recovering/Resolving]
  - Urine abnormality [Not Recovered/Not Resolved]
  - Pollakiuria [Not Recovered/Not Resolved]
  - Irritability [Not Recovered/Not Resolved]
  - Blood pressure increased [Not Recovered/Not Resolved]
  - Mood swings [Not Recovered/Not Resolved]

NARRATIVE: CASE EVENT DATE: 2018
